FAERS Safety Report 14879638 (Version 4)
Quarter: 2025Q4

REPORT INFORMATION
  Report Type: Spontaneous
  Country: EU (occurrence: EU)
  Receive Date: 20180511
  Receipt Date: 20251027
  Transmission Date: 20260117
  Serious: Yes (Life-Threatening, Hospitalization, Other)
  Sender: BAUSCH AND LOMB
  Company Number: None

PATIENT
  Age: 68 Year
  Sex: Male
  Weight: 102 kg

DRUGS (29)
  1. METFORMIN [Interacting]
     Active Substance: METFORMIN HYDROCHLORIDE
     Indication: Diabetes mellitus
     Route: 048
     Dates: end: 20180420
  2. METFORMIN [Interacting]
     Active Substance: METFORMIN HYDROCHLORIDE
     Dosage: DOSE RE-INTRODUCED
     Route: 048
  3. VENLAFAXINE [Interacting]
     Active Substance: VENLAFAXINE HYDROCHLORIDE
     Indication: Narcolepsy
     Route: 048
     Dates: start: 2012, end: 20180419
  4. VENLAFAXINE [Interacting]
     Active Substance: VENLAFAXINE HYDROCHLORIDE
     Dosage: DOSE REINTRODUCED
     Route: 048
  5. HYDROCHLOROTHIAZIDE [Suspect]
     Active Substance: HYDROCHLOROTHIAZIDE
     Indication: Hypertension
     Route: 048
     Dates: end: 20180420
  6. ROSUVASTATIN [Suspect]
     Active Substance: ROSUVASTATIN
     Indication: Hypercholesterolaemia
     Route: 048
     Dates: end: 20180420
  7. ROSUVASTATIN [Suspect]
     Active Substance: ROSUVASTATIN
     Dosage: DOSE RE-INTRODUCED
     Route: 048
  8. POTASSIUM CHLORIDE [Suspect]
     Active Substance: POTASSIUM CHLORIDE
     Indication: Product used for unknown indication
     Route: 042
     Dates: end: 20180420
  9. POTASSIUM CHLORIDE [Suspect]
     Active Substance: POTASSIUM CHLORIDE
     Dosage: DOSE RE-INTRODUCED
     Route: 042
  10. REPAGLINIDE [Suspect]
     Active Substance: REPAGLINIDE
     Indication: Diabetes mellitus
     Route: 048
     Dates: end: 20180420
  11. REPAGLINIDE [Suspect]
     Active Substance: REPAGLINIDE
     Dosage: DOSE RE-INTRODUCED
     Route: 048
  12. IRBESARTAN [Suspect]
     Active Substance: IRBESARTAN
     Indication: Hypertension
     Route: 048
     Dates: end: 20180420
  13. LANTUS [Suspect]
     Active Substance: INSULIN GLARGINE
     Indication: Diabetes mellitus
     Route: 058
     Dates: end: 20180420
  14. LANTUS [Suspect]
     Active Substance: INSULIN GLARGINE
     Dosage: DOSE RE-INTRODUCED
     Route: 058
  15. VICTOZA [Suspect]
     Active Substance: LIRAGLUTIDE
     Indication: Diabetes mellitus
     Route: 058
     Dates: end: 20180420
  16. POTASSIUM CHLORIDE [Suspect]
     Active Substance: POTASSIUM CHLORIDE
     Indication: Product used for unknown indication
     Route: 065
  17. POTASSIUM CHLORIDE [Suspect]
     Active Substance: POTASSIUM CHLORIDE
     Indication: Product used for unknown indication
     Route: 042
     Dates: end: 20180420
  18. EFFEXOR [Suspect]
     Active Substance: VENLAFAXINE HYDROCHLORIDE
     Indication: Narcolepsy
     Route: 065
     Dates: start: 2012
  19. ZYPREXA [Suspect]
     Active Substance: OLANZAPINE
     Indication: Sleep disorder
     Route: 065
  20. OLANZAPINE [Interacting]
     Active Substance: OLANZAPINE
     Indication: Product used for unknown indication
     Route: 048
     Dates: start: 2012
  21. OLANZAPINE [Interacting]
     Active Substance: OLANZAPINE
     Dosage: DOSE RE-INTRODUCED
     Route: 048
  22. DEXTROAMPHETAMINE SULFATE [Interacting]
     Active Substance: DEXTROAMPHETAMINE SULFATE
     Indication: Narcolepsy
     Route: 048
     Dates: start: 20171221
  23. DEXTROAMPHETAMINE SULFATE [Interacting]
     Active Substance: DEXTROAMPHETAMINE SULFATE
     Route: 048
     Dates: start: 20171121, end: 20171220
  24. DEXTROAMPHETAMINE SULFATE [Interacting]
     Active Substance: DEXTROAMPHETAMINE SULFATE
     Route: 048
     Dates: start: 20171114, end: 20180419
  25. DEXTROAMPHETAMINE SULFATE [Interacting]
     Active Substance: DEXTROAMPHETAMINE SULFATE
     Dosage: DOSE RE-INTRODUCED, ATTENTIN 5MG
     Route: 048
  26. INSULIN NOS [Concomitant]
     Active Substance: INSULIN NOS
     Indication: Product used for unknown indication
     Route: 065
  27. LIRAGLUTIDE [Concomitant]
     Active Substance: LIRAGLUTIDE
     Indication: Diabetes mellitus
     Dosage: 10 IU
     Route: 065
  28. REPAGLINIDE [Concomitant]
     Active Substance: REPAGLINIDE
     Indication: Diabetes mellitus
     Dosage: COMPRESSED
     Route: 065
  29. GLUCOPHAGE [Concomitant]
     Active Substance: METFORMIN HYDROCHLORIDE
     Indication: Diabetes mellitus
     Dosage: DIVISIBLE COATED TABLET
     Route: 065

REACTIONS (8)
  - Cardio-respiratory arrest [Recovering/Resolving]
  - Discomfort [Recovered/Resolved]
  - Supraventricular extrasystoles [Recovering/Resolving]
  - Chest pain [Recovered/Resolved]
  - Atrial fibrillation [Recovering/Resolving]
  - Extrasystoles [Recovering/Resolving]
  - Ventricular fibrillation [Recovering/Resolving]
  - Dyspnoea [Recovered/Resolved]

NARRATIVE: CASE EVENT DATE: 20180103
